FAERS Safety Report 4663704-1 (Version None)
Quarter: 2005Q2

REPORT INFORMATION
  Report Type: 
  Country: None (occurrence: None)
  Receive Date: 20050516
  Receipt Date: 20050506
  Transmission Date: 20051028
  Serious: Yes (Death, Hospitalization)
  Sender: FDA-Public Use
  Company Number: 163-20785-05040370

PATIENT
  Age: 55 Year
  Sex: Female

DRUGS (1)
  1. THALOMID [Suspect]
     Indication: OVARIAN CANCER
     Dosage: 400 MG, DAILY, ORAL
     Route: 048
     Dates: start: 20041222, end: 20050101

REACTIONS (9)
  - COORDINATION ABNORMAL [None]
  - DIZZINESS [None]
  - HEADACHE [None]
  - NAUSEA [None]
  - NERVOUS SYSTEM DISORDER [None]
  - PARANEOPLASTIC SYNDROME [None]
  - SPEECH DISORDER [None]
  - VISUAL DISTURBANCE [None]
  - VOMITING [None]
